FAERS Safety Report 20778514 (Version 1)
Quarter: 2022Q2

REPORT INFORMATION
  Report Type: Spontaneous
  Country: US (occurrence: US)
  Receive Date: 20220503
  Receipt Date: 20220503
  Transmission Date: 20220720
  Serious: Yes (Other)
  Sender: FDA-Public Use
  Company Number: US-AMNEAL PHARMACEUTICALS-2021-AMRX-01621

PATIENT
  Age: 2 Year
  Sex: Female
  Weight: 13.515 kg

DRUGS (8)
  1. VIGABATRIN [Suspect]
     Active Substance: VIGABATRIN
     Indication: Infantile spasms
     Dosage: 10 MILLILITER, 2 /DAY
     Route: 048
  2. VIGABATRIN [Suspect]
     Active Substance: VIGABATRIN
     Dosage: 15 MILLILITER, 2 /DAY
     Route: 048
  3. VIGABATRIN [Suspect]
     Active Substance: VIGABATRIN
     Dosage: 750 MILLIGRAM, 2X/DAY
     Route: 048
  4. VIGABATRIN [Suspect]
     Active Substance: VIGABATRIN
     Dosage: 750 MILLIGRAM, 2X/DAY
     Route: 048
  5. VIGABATRIN [Suspect]
     Active Substance: VIGABATRIN
     Dosage: 1000 MILLIGRAM, (2 PACKET MIX IN 10 ML INSTEAD OF 20ML)
     Route: 048
     Dates: start: 20211011, end: 20211011
  6. VIGABATRIN [Suspect]
     Active Substance: VIGABATRIN
     Dosage: 500 MILLIGRAM, MORNING
     Route: 048
     Dates: start: 202110, end: 202110
  7. VIGABATRIN [Suspect]
     Active Substance: VIGABATRIN
     Dosage: 700 MILLIGRAM, 2X/DAY
     Route: 048
     Dates: start: 202110
  8. VITAMINS [Suspect]
     Active Substance: VITAMINS
     Indication: Product used for unknown indication
     Dosage: UNK
     Route: 065

REACTIONS (6)
  - Seizure [Unknown]
  - Ear infection [Unknown]
  - Cough [Unknown]
  - Constipation [Unknown]
  - Product preparation error [Unknown]
  - Wrong dose [Unknown]

NARRATIVE: CASE EVENT DATE: 20211011
